FAERS Safety Report 6551536-9 (Version None)
Quarter: 2010Q1

REPORT INFORMATION
  Report Type: 
  Country: None (occurrence: None)
  Receive Date: 20100126
  Receipt Date: 20100118
  Transmission Date: 20100710
  Serious: Yes (Other)
  Sender: FDA-Public Use
  Company Number: PHEH2009US13872

PATIENT
  Sex: Female
  Weight: 83.06 kg

DRUGS (6)
  1. EXJADE [Suspect]
     Dosage: 250 MG, QD
     Route: 048
     Dates: start: 20090430
  2. EXJADE [Suspect]
     Dosage: 1500 MG, QD
     Route: 048
     Dates: start: 20090920, end: 20091005
  3. ATIVAN [Concomitant]
     Indication: ANXIETY
     Dosage: 0.5 MG, BID PRN
     Route: 048
  4. NORVASC [Concomitant]
     Indication: HYPERTENSION
     Dosage: 10 MG, QD
     Route: 048
  5. RANITIDINE [Concomitant]
     Indication: REFLUX OESOPHAGITIS
     Dosage: 150 MG, BID
     Route: 048
  6. ANTIHYPERTENSIVES [Concomitant]

REACTIONS (11)
  - AURICULAR SWELLING [None]
  - BLINDNESS UNILATERAL [None]
  - DIZZINESS [None]
  - FATIGUE [None]
  - HEADACHE [None]
  - NAUSEA [None]
  - SUDDEN HEARING LOSS [None]
  - TYMPANIC MEMBRANE PERFORATION [None]
  - VERTIGO POSITIONAL [None]
  - VISION BLURRED [None]
  - VOMITING [None]
